FAERS Safety Report 6467698-8 (Version None)
Quarter: 2009Q4

REPORT INFORMATION
  Report Type: 
  Country: None (occurrence: None)
  Receive Date: 20091127
  Receipt Date: 20091112
  Transmission Date: 20100525
  Serious: Yes (Hospitalization)
  Sender: FDA-Public Use
  Company Number: 2009003479

PATIENT
  Age: 80 Year
  Sex: Female

DRUGS (5)
  1. ERLOTINIB HYDROCHLORIDE [Suspect]
     Indication: NON-SMALL CELL LUNG CANCER
     Dosage: 100 MG,QD, ORAL
     Route: 048
     Dates: start: 20090304, end: 20090922
  2. ATORVASTATIN CALCIUM [Concomitant]
  3. PLAVIX [Concomitant]
  4. PRITOR (TELMISARTAN) [Concomitant]
  5. IDEOS (LEKOVIT CA) [Concomitant]

REACTIONS (4)
  - CONFUSIONAL STATE [None]
  - DEHYDRATION [None]
  - GENERAL PHYSICAL HEALTH DETERIORATION [None]
  - MALNUTRITION [None]
